FAERS Safety Report 8215892-8 (Version None)
Quarter: 2012Q1

REPORT INFORMATION
  Report Type: 
  Country: None (occurrence: None)
  Receive Date: 20120316
  Receipt Date: 20120312
  Transmission Date: 20120608
  Serious: Yes (Life-Threatening, Hospitalization)
  Sender: FDA-Public Use
  Company Number: DE-JNJFOC-20111207869

PATIENT
  Sex: Female
  Weight: 64 kg

DRUGS (5)
  1. DEXAMETHASONE SODIUM PHOSPHATE [Concomitant]
     Route: 042
     Dates: start: 20111124, end: 20111124
  2. IBUPROFEN [Concomitant]
     Route: 048
     Dates: start: 20111125
  3. SODIUM CHLORIDE [Concomitant]
     Route: 042
     Dates: start: 20111124, end: 20111124
  4. ARCOXIA [Concomitant]
     Route: 048
     Dates: start: 20111125
  5. DOXORUBICIN HCL [Suspect]
     Indication: OVARIAN CANCER
     Route: 042
     Dates: start: 20111124, end: 20111124

REACTIONS (5)
  - SEPSIS [None]
  - GENERAL PHYSICAL HEALTH DETERIORATION [None]
  - PRODUCT QUALITY ISSUE [None]
  - ASTHENIA [None]
  - PYREXIA [None]
